FAERS Safety Report 24725178 (Version 1)
Quarter: 2024Q4

REPORT INFORMATION
  Report Type: Spontaneous
  Country: CA (occurrence: CA)
  Receive Date: 20241212
  Receipt Date: 20241212
  Transmission Date: 20250115
  Serious: Yes (Hospitalization)
  Sender: TEVA
  Company Number: CA-TEVA-VS-3274843

PATIENT
  Age: 9 Year
  Sex: Male
  Weight: 35 kg

DRUGS (1)
  1. AMOXICILLIN [Suspect]
     Active Substance: AMOXICILLIN
     Indication: Rhinorrhoea
     Dosage: DOSE FORM: NOT SPECIFIED
     Route: 048

REACTIONS (10)
  - Vomiting [Recovered/Resolved]
  - Rash [Recovered/Resolved]
  - Skin lesion [Recovered/Resolved]
  - Hypersensitivity [Recovered/Resolved]
  - Conjunctivitis [Recovered/Resolved]
  - Pruritus [Recovered/Resolved]
  - Lip dry [Recovered/Resolved]
  - Pyrexia [Recovered/Resolved]
  - Macule [Recovered/Resolved]
  - Erythema multiforme [Recovered/Resolved]
